FAERS Safety Report 6703228-0 (Version None)
Quarter: 2010Q2

REPORT INFORMATION
  Report Type: 
  Country: None (occurrence: None)
  Receive Date: 20100430
  Receipt Date: 20100419
  Transmission Date: 20101027
  Serious: Yes (Hospitalization)
  Sender: FDA-Public Use
  Company Number: US-JNJFOC-20100307025

PATIENT
  Sex: Male
  Weight: 136.08 kg

DRUGS (5)
  1. STELARA [Suspect]
     Indication: PSORIASIS
     Route: 058
  2. STELARA [Suspect]
     Route: 058
  3. MICARDIS [Concomitant]
  4. PRILOSEC [Concomitant]
  5. MULTI-VITAMINS [Concomitant]

REACTIONS (1)
  - CELLULITIS [None]
